FAERS Safety Report 20672636 (Version 1)
Quarter: 2022Q2

REPORT INFORMATION
  Report Type: Spontaneous
  Country: US (occurrence: US)
  Receive Date: 20220405
  Receipt Date: 20220405
  Transmission Date: 20220721
  Serious: Yes (Other)
  Sender: FDA-Public Use
  Company Number: US-EyePoint Pharmaceuticals, Inc.-US-EYP-22-00043

PATIENT

DRUGS (1)
  1. DEXYCU [Suspect]
     Active Substance: DEXAMETHASONE
     Indication: Product used for unknown indication
     Dosage: INTO THE INFERIOR PORTION OF THE ANTERIOR CHAMBER (AC)
     Route: 031
     Dates: start: 20220324, end: 20220324

REACTIONS (6)
  - Corneal opacity [Unknown]
  - Overdose [Unknown]
  - Device dislocation [Unknown]
  - Product residue present [Unknown]
  - Medical device removal [Unknown]
  - Off label use [Unknown]

NARRATIVE: CASE EVENT DATE: 20220324
